FAERS Safety Report 8971121 (Version 1)
Quarter: 2012Q4

REPORT INFORMATION
  Report Type: 
  Country: FR (occurrence: FR)
  Receive Date: 20121218
  Receipt Date: 20121218
  Transmission Date: 20130627
  Serious: Yes (Hospitalization)
  Sender: FDA-Public Use
  Company Number: FR-PFIZER INC-2012318476

PATIENT
  Age: 83 Year
  Sex: Male

DRUGS (4)
  1. VANCOMYCIN [Suspect]
     Indication: OSTEITIS
     Dosage: Unknown
     Route: 042
     Dates: start: 20120701, end: 20120903
  2. FORTUM [Suspect]
     Indication: OSTEITIS
     Dosage: Unknown
     Route: 042
     Dates: start: 20120718, end: 20120903
  3. ROCEPHINE [Suspect]
     Indication: OSTEITIS
     Dosage: Unknown
     Route: 051
     Dates: start: 20120701, end: 20120718
  4. GENTAMICIN SULPHATE [Suspect]
     Indication: OSTEITIS
     Dosage: Unknown
     Route: 042
     Dates: start: 20120701, end: 20120718

REACTIONS (1)
  - Peripheral sensorimotor neuropathy [Unknown]
